FAERS Safety Report 9154583 (Version 1)
Quarter: 2013Q1

REPORT INFORMATION
  Report Type: Spontaneous
  Country: ZA (occurrence: ZA)
  Receive Date: 20130311
  Receipt Date: 20130311
  Transmission Date: 20140127
  Serious: Yes (Death, Hospitalization)
  Sender: FDA-Public Use
  Company Number: ZA-ASTRAZENECA-2013SE15388

PATIENT
  Age: 5 Day
  Sex: 0

DRUGS (1)
  1. NEXIAM [Suspect]
     Route: 048

REACTIONS (3)
  - Death [Fatal]
  - Vomiting [Unknown]
  - Off label use [Unknown]
